FAERS Safety Report 8910013 (Version 1)
Quarter: 2012Q4

REPORT INFORMATION
  Report Type: 
  Country: US (occurrence: US)
  Receive Date: 20121115
  Receipt Date: 20121115
  Transmission Date: 20130627
  Serious: No
  Sender: FDA-Public Use
  Company Number: US-PFIZER INC-2012283134

PATIENT
  Age: 47 Year
  Sex: Male
  Weight: 94.33 kg

DRUGS (1)
  1. OXALIPLATIN [Suspect]
     Dosage: 185 mg, UNK
     Route: 042

REACTIONS (3)
  - Paraesthesia oral [Unknown]
  - Lip swelling [Unknown]
  - Erythema [Unknown]
